FAERS Safety Report 12488658 (Version 2)
Quarter: 2016Q4

REPORT INFORMATION
  Report Type: Report from Study
  Country: FR (occurrence: FR)
  Receive Date: 20160622
  Receipt Date: 20161129
  Transmission Date: 20170207
  Serious: Yes (Life-Threatening, Hospitalization)
  Sender: FDA-Public Use
  Company Number: FR-NOVOPROD-472562

PATIENT
  Age: 29 Year
  Sex: Female
  Weight: 60 kg

DRUGS (18)
  1. TIMOFEROL [Concomitant]
     Active Substance: ASCORBIC ACID\FERROUS SULFATE
     Indication: PROPHYLAXIS
     Dosage: UNK
     Dates: start: 20150522, end: 20150907
  2. ERYTHROMYCINE                      /00020901/ [Concomitant]
     Active Substance: ERYTHROMYCIN
     Indication: IMPAIRED GASTRIC EMPTYING
     Dosage: UNK
     Dates: start: 20150619, end: 20151124
  3. SYNTOCINON [Concomitant]
     Active Substance: OXYTOCIN
     Indication: LABOUR INDUCTION
     Dosage: UNK
     Dates: start: 20151126
  4. KETOPROFENE                        /00032001/ [Concomitant]
     Active Substance: KETOPROFEN
     Indication: LABOUR PAIN
     Dosage: UNK
     Dates: start: 20151126
  5. NOVORAPID [Suspect]
     Active Substance: INSULIN ASPART
     Dosage: UNK
     Route: 058
  6. NOVORAPID [Suspect]
     Active Substance: INSULIN ASPART
     Dosage: 46 IU, QD (DOSE REDUCED)
     Route: 058
  7. NOVORAPID [Suspect]
     Active Substance: INSULIN ASPART
     Dosage: 41.4 IU, QD (DOSE REDUCED)
     Route: 058
  8. NOVORAPID [Suspect]
     Active Substance: INSULIN ASPART
     Indication: TYPE 1 DIABETES MELLITUS
     Dosage: 41.4 IU, QD
     Route: 058
     Dates: start: 1998, end: 201510
  9. FERINJECT [Concomitant]
     Active Substance: FERRIC CARBOXYMALTOSE
     Indication: ANAEMIA
     Dosage: UNK
     Dates: start: 20151019, end: 20151019
  10. NOVORAPID [Suspect]
     Active Substance: INSULIN ASPART
     Dosage: 43.6 U, QD
     Route: 058
  11. OMEPRAZOLE. [Concomitant]
     Active Substance: OMEPRAZOLE
     Indication: PROPHYLAXIS
     Dosage: UNK
     Dates: start: 20150522
  12. PARACETAMOL [Concomitant]
     Active Substance: ACETAMINOPHEN
     Indication: LABOUR PAIN
     Dosage: UNK
     Dates: start: 20151126
  13. NOVORAPID [Suspect]
     Active Substance: INSULIN ASPART
     Dosage: 41.4 IU, QD
     Route: 058
     Dates: start: 20151109, end: 20151112
  14. GAVISCON                           /00237601/ [Concomitant]
     Active Substance: ALUMINUM HYDROXIDE\MAGNESIUM CARBONATE
     Indication: VOMITING
     Dosage: UNK
     Dates: start: 20151023, end: 20151027
  15. LARGACTIL                          /00011901/ [Concomitant]
     Active Substance: CHLORPROMAZINE
     Indication: IMPAIRED GASTRIC EMPTYING
     Dosage: UNK
     Dates: start: 20150522, end: 20151124
  16. TARDYFERON B9                      /00023601/ [Concomitant]
     Active Substance: FERROUS SULFATE\FOLIC ACID
     Indication: PROPHYLAXIS
     Dosage: UNK
     Dates: start: 20150907
  17. CEFAZOLINE [Concomitant]
     Active Substance: CEFAZOLIN SODIUM
     Indication: LABOUR INDUCTION
     Dosage: UNK
     Dates: start: 20151126, end: 20151126
  18. LOVENOX [Concomitant]
     Active Substance: ENOXAPARIN SODIUM
     Indication: PROPHYLAXIS
     Dosage: UNK
     Dates: start: 20151021, end: 20151026

REACTIONS (14)
  - Anaemia [Recovered/Resolved]
  - Hypoglycaemia [Recovered/Resolved]
  - Ketonuria [Recovered/Resolved]
  - Exposure during pregnancy [Recovered/Resolved]
  - Vomiting [Recovered/Resolved]
  - Fungal infection [Unknown]
  - Dehydration [Recovered/Resolved]
  - Labour induction [Recovered/Resolved]
  - Ketonuria [Recovered/Resolved]
  - Vomiting [Recovered/Resolved]
  - Hypoglycaemia [Recovered/Resolved]
  - Postpartum haemorrhage [Recovered/Resolved]
  - Foetal macrosomia [Recovered/Resolved]
  - Diabetic metabolic decompensation [Recovered/Resolved]

NARRATIVE: CASE EVENT DATE: 20150301
